FAERS Safety Report 24202320 (Version 1)
Quarter: 2024Q3

REPORT INFORMATION
  Report Type: Spontaneous
  Country: AT (occurrence: AT)
  Receive Date: 20240812
  Receipt Date: 20240812
  Transmission Date: 20241017
  Serious: Yes (Other)
  Sender: ALKEM
  Company Number: AT-ALKEM LABORATORIES LIMITED-AT-ALKEM-2024-18029

PATIENT
  Age: 38 Year
  Sex: Female

DRUGS (1)
  1. RILUZOLE [Suspect]
     Active Substance: RILUZOLE
     Indication: Huntington^s disease
     Dosage: 2.8 GRAM
     Route: 065

REACTIONS (2)
  - Neurotoxicity [Unknown]
  - Toxicity to various agents [Unknown]
